FAERS Safety Report 13179888 (Version 1)
Quarter: 2017Q1

REPORT INFORMATION
  Report Type: Spontaneous
  Country: US (occurrence: US)
  Receive Date: 20170202
  Receipt Date: 20170202
  Transmission Date: 20170428
  Serious: No
  Sender: FDA-Public Use
  Company Number: US-TARO-2016TAR00468

PATIENT
  Age: 29 Year
  Sex: Female

DRUGS (3)
  1. FLUOCINONIDE TOPICAL SOLUTION USP 0.05% [Suspect]
     Active Substance: FLUOCINONIDE
     Indication: ALOPECIA
     Dosage: UNK, ONCE
     Route: 061
     Dates: start: 20160519, end: 20160519
  2. SPIRONOLACTONE. [Concomitant]
     Active Substance: SPIRONOLACTONE
  3. FLUOCINONIDE TOPICAL SOLUTION USP 0.05% [Suspect]
     Active Substance: FLUOCINONIDE
     Indication: SKIN EXFOLIATION

REACTIONS (3)
  - Erythema [Not Recovered/Not Resolved]
  - Skin tightness [Not Recovered/Not Resolved]
  - Application site discolouration [Not Recovered/Not Resolved]

NARRATIVE: CASE EVENT DATE: 20160519
